FAERS Safety Report 22140916 (Version 1)
Quarter: 2023Q1

REPORT INFORMATION
  Report Type: Spontaneous
  Country: US (occurrence: US)
  Receive Date: 20230327
  Receipt Date: 20230327
  Transmission Date: 20230417
  Serious: Yes (Other)
  Sender: FDA-Public Use
  Company Number: US-MYLANLABS-2023M1031963

PATIENT
  Sex: Male

DRUGS (6)
  1. WARFARIN [Suspect]
     Active Substance: WARFARIN
     Indication: Deep vein thrombosis
     Dosage: UNK
     Route: 065
  2. WARFARIN [Suspect]
     Active Substance: WARFARIN
     Indication: Prophylaxis
  3. HEPARIN [Suspect]
     Active Substance: HEPARIN SODIUM
     Indication: Deep vein thrombosis
     Dosage: UNK
     Route: 065
  4. HEPARIN [Suspect]
     Active Substance: HEPARIN SODIUM
     Indication: Prophylaxis
  5. THROMBATE III [Suspect]
     Active Substance: ANTITHROMBIN III HUMAN
     Indication: Deep vein thrombosis
     Dosage: 5000 INTERNATIONAL UNIT, INFUSION
     Route: 042
  6. THROMBATE III [Suspect]
     Active Substance: ANTITHROMBIN III HUMAN
     Indication: Prophylaxis

REACTIONS (1)
  - Drug ineffective [Unknown]
